FAERS Safety Report 20223477 (Version 1)
Quarter: 2021Q4

REPORT INFORMATION
  Report Type: Spontaneous
  Country: IT (occurrence: IT)
  Receive Date: 20211223
  Receipt Date: 20211223
  Transmission Date: 20220303
  Serious: Yes (Hospitalization)
  Sender: FDA-Public Use
  Company Number: IT-MYLANLABS-2021M1095810

PATIENT
  Age: 61 Year
  Sex: Female

DRUGS (11)
  1. ASPIRIN [Suspect]
     Active Substance: ASPIRIN
     Indication: Antiplatelet therapy
     Dosage: 100 MILLIGRAM, QD (INITIATED AFTER LEFT ANTERIOR DESCENDING CORONARY STENTING WITH CONTINUATION AT C
     Route: 065
  2. ASPIRIN [Suspect]
     Active Substance: ASPIRIN
     Dosage: 300 MILLIGRAM (PRIOR TO ADMISSION)
     Route: 065
  3. ASPIRIN [Suspect]
     Active Substance: ASPIRIN
     Dosage: 100 MILLIGRAM, QD (AFTER PERCUTANEOUS TRANSLUMINAL CORONARY ANGIOPLASTY; DUAL ANTIPLATELET THERAPY W
     Route: 065
  4. TICAGRELOR [Suspect]
     Active Substance: TICAGRELOR
     Indication: Antiplatelet therapy
     Dosage: 90 MILLIGRAM (PRIOR TO ADMISSION)
     Route: 065
  5. TICAGRELOR [Suspect]
     Active Substance: TICAGRELOR
     Dosage: 180 MILLIGRAM (AFTER PERCUTANEOUS TRANSLUMINAL CORONARY ANGIOPLASTY)
     Route: 065
  6. TICAGRELOR [Suspect]
     Active Substance: TICAGRELOR
     Dosage: 90 MILLIGRAM, BID (DUAL ANTIPLATELET THERAPY WITH ASPIRIN)
     Route: 065
  7. HEPARIN [Suspect]
     Active Substance: HEPARIN SODIUM
     Indication: Anticoagulant therapy
     Dosage: 4000 UI,BID
     Route: 065
  8. ATORVASTATIN [Concomitant]
     Active Substance: ATORVASTATIN
     Indication: Hypertension
     Dosage: 20 MILLIGRAM
     Route: 065
  9. OLMESARTAN MEDOXOMIL [Concomitant]
     Active Substance: OLMESARTAN MEDOXOMIL
     Indication: Hypertension
     Dosage: 20 MILLIGRAM
     Route: 065
  10. AMLODIPINE [Concomitant]
     Active Substance: AMLODIPINE BESYLATE
     Indication: Hypertension
     Dosage: 5 MILLIGRAM, QD
     Route: 065
  11. Nevo [Concomitant]
     Indication: Acute myocardial infarction
     Dosage: DRUG-ELUTING STENT WAS PLACED UPSTREAM OF THE ONE PREVIOUSLY IMPLANTED ON LEFT ANTERIOR DESCENDING C
     Route: 065

REACTIONS (4)
  - Splenic rupture [Recovered/Resolved]
  - Haemoperitoneum [Recovered/Resolved]
  - Anaemia [Recovered/Resolved]
  - Hypotension [Recovered/Resolved]
